FAERS Safety Report 10780323 (Version 4)
Quarter: 2015Q4

REPORT INFORMATION
  Report Type: Spontaneous
  Country: US (occurrence: US)
  Receive Date: 20150210
  Receipt Date: 20151020
  Transmission Date: 20160304
  Serious: Yes (Hospitalization)
  Sender: FDA-Public Use
  Company Number: US-SA-2015SA014956

PATIENT
  Age: 77 Year
  Sex: Male
  Weight: 92.98 kg

DRUGS (2)
  1. ASPIRIN. [Suspect]
     Active Substance: ASPIRIN
     Route: 065
     Dates: start: 20110323
  2. LOVENOX [Suspect]
     Active Substance: ENOXAPARIN SODIUM
     Indication: TROPONIN INCREASED
     Dosage: 2 FULL SHOTS IN 24 HR PERIOD
     Route: 065
     Dates: start: 20110324, end: 20110325

REACTIONS (5)
  - Haematoma [Unknown]
  - Paralysis [Not Recovered/Not Resolved]
  - Haemorrhage [Unknown]
  - Faecal incontinence [Unknown]
  - Activities of daily living impaired [Unknown]

NARRATIVE: CASE EVENT DATE: 2011
